FAERS Safety Report 22775797 (Version 5)
Quarter: 2023Q4

REPORT INFORMATION
  Report Type: Report from Study
  Country: US (occurrence: US)
  Receive Date: 20230802
  Receipt Date: 20231018
  Transmission Date: 20240110
  Serious: No
  Sender: FDA-Public Use
  Company Number: US-002147023-NVSC2023US168942

PATIENT
  Sex: Female

DRUGS (2)
  1. KISQALI [Suspect]
     Active Substance: RIBOCICLIB
     Indication: Breast cancer
     Dosage: 400 MG, QD
     Route: 048
  2. LETROZOLE [Concomitant]
     Active Substance: LETROZOLE
     Indication: Product used for unknown indication
     Dosage: 2.5 MG
     Route: 065

REACTIONS (7)
  - Urticaria [Recovering/Resolving]
  - Cardiac disorder [Unknown]
  - Hot flush [Unknown]
  - Muscle spasms [Unknown]
  - Alopecia [Unknown]
  - Rash [Recovering/Resolving]
  - Hepatic enzyme increased [Unknown]
